FAERS Safety Report 17976753 (Version 1)
Quarter: 2020Q3

REPORT INFORMATION
  Report Type: Spontaneous
  Country: CA (occurrence: CA)
  Receive Date: 20200703
  Receipt Date: 20200703
  Transmission Date: 20201103
  Serious: Yes (Hospitalization, Other)
  Sender: FDA-Public Use
  Company Number: CA-009507513-2007CAN000324

PATIENT
  Age: 72 Year
  Sex: Female

DRUGS (10)
  1. OPUS CAL D [Suspect]
     Active Substance: CALCIUM CARBONATE\CHOLECALCIFEROL
     Dosage: UNK
  2. KEYTRUDA [Suspect]
     Active Substance: PEMBROLIZUMAB
     Dosage: UNK, Q3W
     Dates: start: 2020
  3. CRESTOR [Suspect]
     Active Substance: ROSUVASTATIN CALCIUM
  4. AMLODIPINE [Suspect]
     Active Substance: AMLODIPINE BESYLATE
     Dosage: UNK
  5. LENVATINIB MESYLATE [Suspect]
     Active Substance: LENVATINIB MESYLATE
     Indication: ENDOMETRIAL CANCER
     Dosage: 20 MILLIGRAM
     Route: 048
     Dates: start: 20200427, end: 20200505
  6. DILAUDID [Suspect]
     Active Substance: HYDROMORPHONE HYDROCHLORIDE
  7. CYANOCOBALAMIN. [Suspect]
     Active Substance: CYANOCOBALAMIN
     Dosage: UNK
  8. VITAMIN D (UNSPECIFIED) [Suspect]
     Active Substance: VITAMIN D NOS
     Dosage: UNK
  9. PMS ROSUVASTATIN [Suspect]
     Active Substance: ROSUVASTATIN
     Dosage: UNK
  10. ELIQUIS [Suspect]
     Active Substance: APIXABAN
     Dosage: TOTAL DAIY DOSE: 5 MG, BID

REACTIONS (7)
  - Abdominal pain [Unknown]
  - Drug intolerance [Unknown]
  - Pyrexia [Unknown]
  - Blood pressure increased [Unknown]
  - Malignant neoplasm progression [Unknown]
  - Fatigue [Unknown]
  - Renal impairment [Unknown]

NARRATIVE: CASE EVENT DATE: 2020
